FAERS Safety Report 8251269-7 (Version None)
Quarter: 2012Q2

REPORT INFORMATION
  Report Type: 
  Country: None (occurrence: None)
  Receive Date: 20120402
  Receipt Date: 20120326
  Transmission Date: 20120825
  Serious: Yes (Other)
  Sender: FDA-Public Use
  Company Number: US-US-EMD SERONO, INC.-7121870

PATIENT
  Sex: Male

DRUGS (2)
  1. REBIF [Suspect]
     Dates: start: 20101130
  2. REBIF [Suspect]
     Indication: MULTIPLE SCLEROSIS
     Route: 058
     Dates: start: 20101130

REACTIONS (7)
  - VISUAL ACUITY REDUCED [None]
  - EYE DISORDER [None]
  - BLADDER DISORDER [None]
  - CHRONIC OBSTRUCTIVE PULMONARY DISEASE [None]
  - URINARY RETENTION [None]
  - EMPHYSEMA [None]
  - BLADDER HYPERTROPHY [None]
